FAERS Safety Report 11838397 (Version 9)
Quarter: 2016Q3

REPORT INFORMATION
  Report Type: Spontaneous
  Country: US (occurrence: US)
  Receive Date: 20151215
  Receipt Date: 20160711
  Transmission Date: 20161109
  Serious: Yes (Other)
  Sender: FDA-Public Use
  Company Number: US-PFIZER INC-2015431339

PATIENT
  Age: 82 Year
  Sex: Female
  Weight: 59 kg

DRUGS (6)
  1. IBRANCE [Suspect]
     Active Substance: PALBOCICLIB
     Dosage: UNK
  2. IBRANCE [Suspect]
     Active Substance: PALBOCICLIB
     Indication: BREAST CANCER METASTATIC
     Dosage: 125 MG ONCE DAILY ON DAYS 1-21 EVERY 28 DAYS
     Route: 048
     Dates: start: 20151120
  3. IBRANCE [Suspect]
     Active Substance: PALBOCICLIB
     Dosage: UNK
  4. IBRANCE [Suspect]
     Active Substance: PALBOCICLIB
     Dosage: 100 MG, DAY 1-21 Q 28 DAYS
     Route: 048
     Dates: start: 20160604
  5. IBRANCE [Suspect]
     Active Substance: PALBOCICLIB
     Dosage: UNK
  6. IBRANCE [Suspect]
     Active Substance: PALBOCICLIB
     Dosage: 125 MG, CYCLIC (DAY1-D21 Q28 DAYS)
     Route: 048
     Dates: start: 20151120

REACTIONS (33)
  - Gait disturbance [Unknown]
  - Asthma [Unknown]
  - Dysphonia [Unknown]
  - Cough [Unknown]
  - Musculoskeletal stiffness [Recovering/Resolving]
  - Condition aggravated [Unknown]
  - Nausea [Recovering/Resolving]
  - Pain in extremity [Unknown]
  - Cognitive disorder [Unknown]
  - Upper-airway cough syndrome [Unknown]
  - Sinus disorder [Unknown]
  - Madarosis [Unknown]
  - Tongue blistering [Unknown]
  - Feeling abnormal [Unknown]
  - Pleural effusion [Recovering/Resolving]
  - Dizziness [Unknown]
  - Vertigo [Unknown]
  - Vision blurred [Unknown]
  - Fatigue [Unknown]
  - Feeling abnormal [Unknown]
  - Bronchitis [Unknown]
  - Balance disorder [Unknown]
  - Glossodynia [Unknown]
  - Lymphocyte count increased [Unknown]
  - Chills [Unknown]
  - Contusion [Unknown]
  - Gastrooesophageal reflux disease [Unknown]
  - White blood cell count decreased [Unknown]
  - Alopecia [Unknown]
  - Nasopharyngitis [Unknown]
  - Toothache [Unknown]
  - Muscle spasms [Unknown]
  - Feeling drunk [Unknown]

NARRATIVE: CASE EVENT DATE: 201512
